FAERS Safety Report 10062932 (Version 1)
Quarter: 2014Q2

REPORT INFORMATION
  Report Type: Spontaneous
  Country: CH (occurrence: CH)
  Receive Date: 20140407
  Receipt Date: 20140407
  Transmission Date: 20141212
  Serious: Yes (Other)
  Sender: FDA-Public Use
  Company Number: CH-PFIZER INC-2014093591

PATIENT
  Age: 60 Year
  Sex: Male

DRUGS (4)
  1. LYRICA [Suspect]
     Dosage: 75 MG, 2X/DAY
     Route: 048
     Dates: start: 2005
  2. MOBICOX [Suspect]
     Dosage: 7.5 MG, 1X/DAY
     Route: 048
     Dates: start: 2005
  3. OMEPRAZOLE [Suspect]
     Dosage: 20 MG, AS NEEDED
     Route: 048
     Dates: start: 2005
  4. DAFALGAN [Suspect]
     Dosage: 1000 MG, AS NEEDED
     Route: 048
     Dates: start: 2005

REACTIONS (1)
  - Pseudolymphoma [Not Recovered/Not Resolved]
